FAERS Safety Report 9505353 (Version 1)
Quarter: 2013Q1

REPORT INFORMATION
  Report Type: Spontaneous
  Country: US (occurrence: None)
  Receive Date: 20130220
  Receipt Date: 20130220
  Transmission Date: 20140127
  Serious: No
  Sender: FDA-Public Use
  Company Number: 1000040570

PATIENT
  Age: 54 Year
  Sex: Female

DRUGS (2)
  1. VIBRYD [Suspect]
     Indication: DEPRESSION
     Dosage: 10 MG (10 MG, 1 IN 1 D) , ORAL
     Route: 048
     Dates: start: 201210, end: 2012
  2. PREMARIN (ESTROGENS CONJUGATED) (ESTROGENS CONJUGATED) [Concomitant]

REACTIONS (4)
  - Morbid thoughts [None]
  - Night sweats [None]
  - Dizziness [None]
  - Anxiety [None]
